FAERS Safety Report 16329419 (Version 3)
Quarter: 2019Q4

REPORT INFORMATION
  Report Type: Report from Study
  Country: DE (occurrence: DE)
  Receive Date: 20190520
  Receipt Date: 20191211
  Transmission Date: 20200122
  Serious: Yes (Hospitalization)
  Sender: FDA-Public Use
  Company Number: DE-UCBSA-2019020240

PATIENT
  Sex: Female

DRUGS (6)
  1. FUSICUTAN PLUS BETAMETHASON [Concomitant]
     Indication: ERYTHEMA NODOSUM
     Dosage: 60 GRAM
     Dates: start: 2019
  2. IBUPROFEN. [Concomitant]
     Active Substance: IBUPROFEN
     Indication: PRODUCT USED FOR UNKNOWN INDICATION
     Dosage: 600 MILLIGRAM, ONCE DAILY (QD)
     Dates: start: 20180326
  3. MOMEGALEN [Concomitant]
     Indication: ERYTHEMA NODOSUM
     Dosage: UNK
     Dates: start: 2019
  4. CERTOLIZUMAB PEGOL [Suspect]
     Active Substance: CERTOLIZUMAB PEGOL
     Indication: AXIAL SPONDYLOARTHRITIS
     Dosage: 200 MILLIGRAM, EV 2 WEEKS(QOW)
     Dates: start: 20180611
  5. SULFASALAZINE. [Concomitant]
     Active Substance: SULFASALAZINE
     Indication: AXIAL SPONDYLOARTHRITIS
     Dosage: 3000 MILLIGRAM, ONCE DAILY (QD)
     Dates: start: 20150201
  6. EBASTIN ARISTO [Concomitant]
     Indication: ERYTHEMA NODOSUM
     Dosage: 10 MILLIGRAM
     Dates: start: 2019

REACTIONS (5)
  - Urinary tract infection [Unknown]
  - Polycystic ovaries [Unknown]
  - Endometriosis [Unknown]
  - Erythema nodosum [Recovered/Resolved]
  - Omphalitis [Unknown]

NARRATIVE: CASE EVENT DATE: 20181015
